FAERS Safety Report 7988180-2 (Version None)
Quarter: 2011Q4

REPORT INFORMATION
  Report Type: 
  Country: None (occurrence: None)
  Receive Date: 20111216
  Receipt Date: 20101213
  Transmission Date: 20120403
  Serious: No
  Sender: FDA-Public Use
  Company Number: US-BRISTOL-MYERS SQUIBB COMPANY-15439045

PATIENT
  Age: 46 Year
  Sex: Female

DRUGS (5)
  1. ABILIFY [Suspect]
     Indication: FEELING ABNORMAL
     Dosage: 5MG EVERY OTHER DAY
  2. ABILIFY [Suspect]
     Indication: ANXIETY
     Dosage: 5MG EVERY OTHER DAY
  3. FLOMAX [Concomitant]
     Indication: BLADDER DISORDER
  4. VYVANSE [Concomitant]
     Indication: ATTENTION DEFICIT/HYPERACTIVITY DISORDER
  5. EFFEXOR [Concomitant]
     Indication: DEPRESSION

REACTIONS (2)
  - DIARRHOEA [None]
  - ALOPECIA [None]
